FAERS Safety Report 6097920-1 (Version None)
Quarter: 2009Q1

REPORT INFORMATION
  Report Type: 
  Country: None (occurrence: None)
  Receive Date: 20090227
  Receipt Date: 20090212
  Transmission Date: 20090719
  Serious: Yes (Hospitalization)
  Sender: FDA-Public Use
  Company Number: US-GENENTECH-277736

PATIENT
  Sex: Male

DRUGS (15)
  1. AVASTIN [Suspect]
     Indication: NON-SMALL CELL LUNG CANCER
     Dosage: UNK
     Route: 065
     Dates: start: 20080909
  2. RAD001 [Suspect]
     Indication: NON-SMALL CELL LUNG CANCER
     Dosage: 30 MG, 1/WEEK
     Route: 048
     Dates: start: 20080910, end: 20081117
  3. CARBOPLATIN [Concomitant]
     Indication: DRUG USE FOR UNKNOWN INDICATION
     Dosage: UNK
     Dates: start: 20080909
  4. PACLITAXEL [Concomitant]
     Indication: DRUG USE FOR UNKNOWN INDICATION
     Dosage: UNK
     Dates: start: 20080909
  5. PREVACID [Concomitant]
     Indication: DRUG USE FOR UNKNOWN INDICATION
  6. ADVIL [Concomitant]
     Indication: DRUG USE FOR UNKNOWN INDICATION
  7. VITAMIN B-12 [Concomitant]
     Indication: DRUG USE FOR UNKNOWN INDICATION
  8. MULTI VITAMIN/MINERAL [Concomitant]
     Indication: DRUG USE FOR UNKNOWN INDICATION
  9. HYDROCODONE [Concomitant]
     Indication: DRUG USE FOR UNKNOWN INDICATION
  10. GOLD BOND PRODUCT NOS [Concomitant]
     Indication: DRUG USE FOR UNKNOWN INDICATION
  11. GLIPIZIDE [Concomitant]
     Indication: DRUG USE FOR UNKNOWN INDICATION
  12. CORTISONE [Concomitant]
     Indication: DRUG USE FOR UNKNOWN INDICATION
  13. ASCORBIC ACID [Concomitant]
     Indication: DRUG USE FOR UNKNOWN INDICATION
  14. GRANISETRON [Concomitant]
     Indication: DRUG USE FOR UNKNOWN INDICATION
  15. COLACE [Concomitant]
     Indication: DRUG USE FOR UNKNOWN INDICATION

REACTIONS (1)
  - PNEUMOTHORAX [None]
